FAERS Safety Report 8958310 (Version 1)
Quarter: 2012Q4

REPORT INFORMATION
  Report Type: 
  Country: US (occurrence: US)
  Receive Date: 20121210
  Receipt Date: 20121210
  Transmission Date: 20130627
  Serious: Yes (Hospitalization, Other)
  Sender: FDA-Public Use
  Company Number: US-B.I. PHARMACEUTICALS,INC./RIDGEFIELD-2012-BI-02285BP

PATIENT
  Sex: Female
  Weight: 95 kg

DRUGS (14)
  1. AGGRENOX [Suspect]
     Indication: CEREBROVASCULAR ACCIDENT PROPHYLAXIS
     Route: 048
     Dates: start: 2005
  2. LASIX [Concomitant]
     Dosage: 20 mg
     Route: 048
  3. PRILOSEC [Concomitant]
     Dosage: 20 mg
     Route: 048
  4. AMBIEN [Concomitant]
     Dosage: 10 mg
     Route: 048
  5. NOVOLIN 70/30 UNITS [Concomitant]
     Route: 058
  6. ATENOLOL [Concomitant]
     Dosage: 50 mg
     Route: 048
  7. MEDROL [Concomitant]
     Route: 048
  8. PROZAC [Concomitant]
     Dosage: 20 mg
     Route: 048
  9. POTASSIUM CHLORIDE [Concomitant]
     Dosage: 20 mEq
     Route: 048
  10. LOTENSIN [Concomitant]
     Dosage: 20 mg
     Route: 048
  11. PRAVASTATIN SODIUM [Concomitant]
     Dosage: 80 mg
     Route: 048
  12. NORVASC [Concomitant]
     Dosage: 10 mg
     Route: 048
  13. INSULIN [Concomitant]
     Indication: DIABETES MELLITUS
     Route: 058
     Dates: start: 1997
  14. CLONIDINE [Concomitant]
     Dosage: 0.1 mg
     Route: 048

REACTIONS (7)
  - Cerebrovascular accident [Recovered/Resolved]
  - Cerebrovascular accident [Recovered/Resolved with Sequelae]
  - Cataract [Not Recovered/Not Resolved]
  - Hypertension [Recovered/Resolved]
  - Memory impairment [Not Recovered/Not Resolved]
  - Vision blurred [Not Recovered/Not Resolved]
  - Hyperlipidaemia [Not Recovered/Not Resolved]
